FAERS Safety Report 14205091 (Version 2)
Quarter: 2017Q4

REPORT INFORMATION
  Report Type: Report from Study
  Country: None (occurrence: US)
  Receive Date: 20171120
  Receipt Date: 20171205
  Transmission Date: 20180321
  Serious: Yes (Death, Hospitalization)
  Sender: FDA-Public Use
  Company Number: US-ABBVIE-17P-163-2168249-00

PATIENT
  Age: 56 Year
  Sex: Male

DRUGS (2)
  1. CRESENDA [Concomitant]
     Indication: ANTIFUNGAL PROPHYLAXIS
     Dates: start: 20170829
  2. VENCLEXTA [Suspect]
     Active Substance: VENETOCLAX
     Indication: ACUTE MYELOID LEUKAEMIA
     Route: 048
     Dates: start: 20171006

REACTIONS (8)
  - Headache [Not Recovered/Not Resolved]
  - Neutropenia [Not Recovered/Not Resolved]
  - Sinusitis [Not Recovered/Not Resolved]
  - Tachycardia [Recovered/Resolved]
  - Memory impairment [Not Recovered/Not Resolved]
  - Sinusitis fungal [Fatal]
  - Confusional state [Not Recovered/Not Resolved]
  - Off label use [Not Recovered/Not Resolved]

NARRATIVE: CASE EVENT DATE: 20171011
